FAERS Safety Report 17907534 (Version 3)
Quarter: 2020Q3

REPORT INFORMATION
  Report Type: Spontaneous
  Country: HR (occurrence: HR)
  Receive Date: 20200617
  Receipt Date: 20200921
  Transmission Date: 20201103
  Serious: Yes (Life-Threatening, Hospitalization, Other)
  Sender: FDA-Public Use
  Company Number: HR-JAZZ-2020-HR-007642

PATIENT
  Age: 7 Year
  Sex: Female
  Weight: 30 kg

DRUGS (6)
  1. DAUNORUBICIN [Suspect]
     Active Substance: DAUNORUBICIN
     Indication: ACUTE LYMPHOCYTIC LEUKAEMIA
     Dosage: 30 MILLIGRAM/SQ. METER/DAY(I.V./1 H (4 TIMES)
     Route: 042
  2. PREDNISONE. [Suspect]
     Active Substance: PREDNISONE
     Indication: ACUTE LYMPHOCYTIC LEUKAEMIA
     Dosage: 60 MILLIGRAM/SQ. METER/DAY (1?28 DAY)
     Route: 048
  3. ASPARAGINASE [Suspect]
     Active Substance: ASPARAGINASE
     Indication: ACUTE LYMPHOCYTIC LEUKAEMIA
     Dosage: 500 IU/M2/DAY, (I.V./1H (8 TIMES)
     Route: 042
  4. METHOTREXATE SODIUM. [Suspect]
     Active Substance: METHOTREXATE SODIUM
     Indication: ACUTE LYMPHOCYTIC LEUKAEMIA
     Dosage: 12 MILLIGRAM
     Route: 037
  5. PREDNISONE. [Suspect]
     Active Substance: PREDNISONE
     Dosage: TAPERING
     Route: 048
  6. VINCRISTINE [Suspect]
     Active Substance: VINCRISTINE
     Indication: ACUTE LYMPHOCYTIC LEUKAEMIA
     Dosage: 1.5 MILLIGRAM/SQ. METER/DAY (4 TIMES)
     Route: 042

REACTIONS (16)
  - Cerebral ischaemia [Recovered/Resolved]
  - Sepsis [Recovered/Resolved]
  - Cerebral artery thrombosis [Recovered/Resolved]
  - Neurotoxicity [Recovered/Resolved]
  - Febrile neutropenia [Recovered/Resolved]
  - Nystagmus [Recovered/Resolved]
  - Dysarthria [Recovered/Resolved]
  - Epilepsy [Recovered/Resolved]
  - Cerebral atrophy [Recovered/Resolved]
  - Tremor [Recovered/Resolved]
  - Ileus paralytic [Recovered/Resolved]
  - Hemiparesis [Recovered/Resolved]
  - Hypotonia [Recovered/Resolved]
  - Asthenia [Recovered/Resolved]
  - Hyponatraemia [Recovered/Resolved]
  - Hypertension [Recovered/Resolved]
